FAERS Safety Report 22241930 (Version 1)
Quarter: 2023Q2

REPORT INFORMATION
  Report Type: Spontaneous
  Country: JP (occurrence: JP)
  Receive Date: 20230421
  Receipt Date: 20230421
  Transmission Date: 20230721
  Serious: Yes (Other)
  Sender: FDA-Public Use
  Company Number: JP-002147023-PHJP2018JP016578

PATIENT
  Age: 53 Year
  Sex: Male

DRUGS (5)
  1. NEORAL [Suspect]
     Active Substance: CYCLOSPORINE
     Indication: Psoriasis
     Dosage: UNK
     Route: 065
  2. NEORAL [Suspect]
     Active Substance: CYCLOSPORINE
     Indication: Erythrodermic psoriasis
  3. INFLIXIMAB [Concomitant]
     Active Substance: INFLIXIMAB
     Indication: Product used for unknown indication
     Dosage: UNK
     Route: 065
  4. ADALIMUMAB [Concomitant]
     Active Substance: ADALIMUMAB
     Indication: Product used for unknown indication
     Dosage: UNK
     Route: 065
  5. BRODALUMAB [Concomitant]
     Active Substance: BRODALUMAB
     Indication: Product used for unknown indication
     Dosage: UNK
     Route: 065

REACTIONS (12)
  - Diabetes mellitus [Unknown]
  - Arrhythmia [Unknown]
  - Blindness [Unknown]
  - Uveitis [Unknown]
  - Concomitant disease aggravated [Unknown]
  - Pustule [Unknown]
  - Arthritis [Unknown]
  - Cardiac valve disease [Unknown]
  - Hyperuricaemia [Unknown]
  - Gait disturbance [Unknown]
  - Psoriasis [Recovering/Resolving]
  - Therapeutic response decreased [Unknown]
